FAERS Safety Report 5807687-7 (Version None)
Quarter: 2008Q3

REPORT INFORMATION
  Report Type: 
  Country: None (occurrence: None)
  Receive Date: 20080708
  Receipt Date: 20080703
  Transmission Date: 20090109
  Serious: Yes (Death, Hospitalization)
  Sender: FDA-Public Use
  Company Number: 2008SP011887

PATIENT
  Age: 69 Year
  Sex: Female
  Weight: 56 kg

DRUGS (17)
  1. TEMODAL [Suspect]
     Indication: LYMPHOMA
     Dosage: 230 MG; QD; PO
     Route: 048
     Dates: start: 20080519, end: 20080523
  2. METHOTREXATE [Suspect]
     Indication: LYMPHOMA
     Dosage: 5.4 GM; QD; IV
     Route: 042
     Dates: start: 20080519, end: 20080602
  3. MEDROL [Concomitant]
  4. LOVENOX [Concomitant]
  5. CACIT D3 [Concomitant]
  6. NEXIUM [Concomitant]
  7. SINTROM [Concomitant]
  8. IRBESARTAN [Concomitant]
  9. NICARDIPINE HCL [Concomitant]
  10. CORDARONE [Concomitant]
  11. LASIX [Concomitant]
  12. EZETROL [Concomitant]
  13. POTASSIUM CHLORIDE [Concomitant]
  14. ZOLPIDEM TARTRATE [Concomitant]
  15. NEUPOGEN [Concomitant]
  16. FORTUM [Concomitant]
  17. AMIKACIN [Concomitant]

REACTIONS (28)
  - ACIDOSIS [None]
  - ARRHYTHMIA [None]
  - ATELECTASIS [None]
  - ATRIAL FIBRILLATION [None]
  - BLOOD CORTISOL ABNORMAL [None]
  - BONE MARROW FAILURE [None]
  - CARDIAC ARREST [None]
  - DYSPNOEA [None]
  - EJECTION FRACTION DECREASED [None]
  - ESCHERICHIA INFECTION [None]
  - HAEMODIALYSIS [None]
  - HEPATOTOXICITY [None]
  - HYPERTHERMIA [None]
  - HYPOKINESIA [None]
  - INTESTINAL INFARCTION [None]
  - INTESTINAL ISCHAEMIA [None]
  - MULTI-ORGAN FAILURE [None]
  - MUSCLE HAEMORRHAGE [None]
  - MYDRIASIS [None]
  - PERITONEAL EFFUSION [None]
  - PETECHIAE [None]
  - PLEURAL EFFUSION [None]
  - PYELONEPHRITIS [None]
  - SEPTIC SHOCK [None]
  - SINUS ARREST [None]
  - THROMBOCYTOPENIA [None]
  - TRANSAMINASES INCREASED [None]
  - TROPONIN INCREASED [None]
